FAERS Safety Report 8159742-7 (Version None)
Quarter: 2012Q1

REPORT INFORMATION
  Report Type: 
  Country: None (occurrence: None)
  Receive Date: 20120223
  Receipt Date: 20120215
  Transmission Date: 20120608
  Serious: Yes (Hospitalization)
  Sender: FDA-Public Use
  Company Number: US-BAYER-2011-105703

PATIENT
  Age: 22 Year
  Sex: Female
  Weight: 81.633 kg

DRUGS (9)
  1. DROSPIRENONE AND ETHINYL ESTRADIOL [Suspect]
     Dosage: UNK
     Dates: start: 20061001, end: 20081201
  2. COUMADIN [Concomitant]
  3. OXYGEN [Concomitant]
  4. ASPIRIN [Concomitant]
  5. LOVENOX [Concomitant]
  6. WARFARIN SODIUM [Concomitant]
  7. PLAQUENIL [Concomitant]
     Indication: SYSTEMIC LUPUS ERYTHEMATOSUS
     Dosage: 200 MG DAILY
     Dates: start: 20030901
  8. PREDNISONE [Concomitant]
     Indication: SYSTEMIC LUPUS ERYTHEMATOSUS
     Dosage: UNK
     Dates: start: 20030901
  9. YASMIN [Suspect]
     Dosage: UNK
     Dates: start: 20061001, end: 20081201

REACTIONS (12)
  - WEIGHT BEARING DIFFICULTY [None]
  - DYSPNOEA [None]
  - DIZZINESS [None]
  - FEAR [None]
  - PAIN IN EXTREMITY [None]
  - INJURY [None]
  - DEEP VEIN THROMBOSIS [None]
  - PULMONARY EMBOLISM [None]
  - DEPRESSION SUICIDAL [None]
  - PAIN [None]
  - SPEECH DISORDER [None]
  - DEPRESSION [None]
